FAERS Safety Report 9344678 (Version 3)
Quarter: 2013Q3

REPORT INFORMATION
  Report Type: Report from Study
  Country: JP (occurrence: JP)
  Receive Date: 20130612
  Receipt Date: 20130903
  Transmission Date: 20140515
  Serious: Yes (Hospitalization)
  Sender: FDA-Public Use
  Company Number: JP-ABBOTT-13P-087-1100327-00

PATIENT
  Age: 23 Year
  Sex: Female
  Weight: 54 kg

DRUGS (12)
  1. HUMIRA [Suspect]
     Indication: CROHN^S DISEASE
     Route: 058
     Dates: start: 20121009, end: 20121009
  2. HUMIRA [Suspect]
     Route: 058
     Dates: start: 20121026, end: 20121026
  3. HUMIRA [Suspect]
     Route: 058
     Dates: start: 20121108
  4. MESALAZINE [Concomitant]
     Indication: CROHN^S DISEASE
     Route: 048
     Dates: start: 20120904
  5. CELECOXIB [Concomitant]
     Indication: CROHN^S DISEASE
     Route: 048
     Dates: end: 20121108
  6. SODIUM FERROUS CITRATE [Concomitant]
     Indication: PRODUCT USED FOR UNKNOWN INDICATION
     Route: 048
     Dates: start: 20121008, end: 20121108
  7. PARENTERAL NUTRITION [Concomitant]
     Indication: CROHN^S DISEASE
     Dates: end: 20121108
  8. LEVOFLOXACIN HYDRATE [Concomitant]
     Indication: CROHN^S DISEASE
     Route: 048
     Dates: end: 20121108
  9. LEVOFLOXACIN HYDRATE [Concomitant]
     Indication: ANAL FISTULA
     Route: 048
     Dates: start: 20130117, end: 20130124
  10. LEVOFLOXACIN HYDRATE [Concomitant]
     Route: 048
     Dates: start: 20130228, end: 20130306
  11. TRIAMCINOLONE ACETONIDE [Concomitant]
     Indication: CROHN^S DISEASE
     Route: 061
     Dates: end: 20121025
  12. MAGNESIUM OXIDE [Concomitant]
     Indication: CONSTIPATION
     Route: 048
     Dates: start: 20121108

REACTIONS (1)
  - Small intestinal stenosis [Recovered/Resolved]
